FAERS Safety Report 4654808-8 (Version None)
Quarter: 2005Q2

REPORT INFORMATION
  Report Type: 
  Country: None (occurrence: None)
  Receive Date: 20050505
  Receipt Date: 20050505
  Transmission Date: 20051028
  Serious: No
  Sender: FDA-Public Use
  Company Number: None

PATIENT
  Sex: Male
  Weight: 78.0187 kg

DRUGS (2)
  1. ZOLEDRONIC ACID   4MG/5ML    NOVARTIS [Suspect]
     Indication: METASTASES TO BONE
     Dosage: 4MG   EVERY 28 DAYS   INTRAVENOU
     Route: 042
     Dates: start: 20030325, end: 20040720
  2. ZOLEDRONIC ACID   4MG/5ML    NOVARTIS [Suspect]
     Indication: NASOPHARYNGEAL CANCER
     Dosage: 4MG   EVERY 28 DAYS   INTRAVENOU
     Route: 042
     Dates: start: 20030325, end: 20040720

REACTIONS (2)
  - JAW DISORDER [None]
  - OSTEONECROSIS [None]
